FAERS Safety Report 16691876 (Version 3)
Quarter: 2019Q3

REPORT INFORMATION
  Report Type: Spontaneous
  Country: US (occurrence: US)
  Receive Date: 20190812
  Receipt Date: 20190927
  Transmission Date: 20191004
  Serious: No
  Sender: FDA-Public Use
  Company Number: US-BIOGEN-2019BI00772771

PATIENT
  Sex: Female

DRUGS (2)
  1. PLEGRIDY [Suspect]
     Active Substance: PEGINTERFERON BETA-1A
     Indication: MULTIPLE SCLEROSIS
     Route: 065
     Dates: start: 20170328, end: 20190809
  2. PLEGRIDY [Suspect]
     Active Substance: PEGINTERFERON BETA-1A
     Route: 058

REACTIONS (6)
  - Hot flush [Recovered/Resolved]
  - Muscular weakness [Unknown]
  - Feeling abnormal [Unknown]
  - Anxiety [Unknown]
  - Diarrhoea [Recovered/Resolved]
  - Flushing [Recovered/Resolved]
